FAERS Safety Report 6464968-4 (Version None)
Quarter: 2009Q4

REPORT INFORMATION
  Report Type: 
  Country: None (occurrence: None)
  Receive Date: 20091124
  Receipt Date: 20091110
  Transmission Date: 20100525
  Serious: Yes (Hospitalization)
  Sender: FDA-Public Use
  Company Number: 8047911

PATIENT
  Age: 47 Year
  Sex: Female
  Weight: 79.8 kg

DRUGS (9)
  1. CDP870 [Suspect]
     Indication: RHEUMATOID ARTHRITIS
     Dosage: 200 MG 1/2W SC
     Route: 058
  2. CDP870 [Suspect]
     Indication: RHEUMATOID ARTHRITIS
     Dosage: 200 MG 1/2W SC
     Route: 058
     Dates: start: 20081125, end: 20090528
  3. CDP870 [Suspect]
     Indication: RHEUMATOID ARTHRITIS
     Dosage: 200 MG 1/2W SC
     Route: 058
     Dates: start: 20090720
  4. METHOTREXATE [Concomitant]
  5. FOLIC ACID [Concomitant]
  6. PRILOSEC [Concomitant]
  7. TYLENOL (CAPLET) [Concomitant]
  8. MIRALAX [Concomitant]
  9. PHENTERMINE [Concomitant]

REACTIONS (1)
  - PERIRECTAL ABSCESS [None]
